FAERS Safety Report 15662594 (Version 2)
Quarter: 2018Q4

REPORT INFORMATION
  Report Type: Spontaneous
  Country: US (occurrence: US)
  Receive Date: 20181127
  Receipt Date: 20181224
  Transmission Date: 20190205
  Serious: No
  Sender: FDA-Public Use
  Company Number: US-EMD SERONO-9055183

PATIENT
  Age: 52 Year
  Sex: Female

DRUGS (2)
  1. AMPYRA [Suspect]
     Active Substance: DALFAMPRIDINE
     Indication: MULTIPLE SCLEROSIS
  2. REBIF [Suspect]
     Active Substance: INTERFERON BETA-1A
     Indication: MULTIPLE SCLEROSIS
     Route: 058
     Dates: start: 2010

REACTIONS (5)
  - Injection site pruritus [Unknown]
  - Injection site erythema [Unknown]
  - Pharyngitis streptococcal [Unknown]
  - Influenza like illness [Unknown]
  - Injection site mass [Unknown]

NARRATIVE: CASE EVENT DATE: 201811
